FAERS Safety Report 5729870-1 (Version None)
Quarter: 2008Q2

REPORT INFORMATION
  Report Type: 
  Country: None (occurrence: None)
  Receive Date: 20080502
  Receipt Date: 20080416
  Transmission Date: 20081010
  Serious: No
  Sender: FDA-Public Use
  Company Number: WAES 0804USA04243

PATIENT
  Sex: Male

DRUGS (1)
  1. TOP IVOMEC POUR ON UNK [Suspect]
     Indication: DRUG ADMINISTRATION ERROR
     Dosage: TOP
     Route: 061
     Dates: start: 20080415, end: 20080415

REACTIONS (4)
  - ACCIDENTAL EXPOSURE [None]
  - DIARRHOEA [None]
  - NAUSEA [None]
  - VOMITING [None]
